FAERS Safety Report 9682856 (Version 1)
Quarter: 2013Q4

REPORT INFORMATION
  Report Type: Spontaneous
  Country: BR (occurrence: BR)
  Receive Date: 20131112
  Receipt Date: 20131112
  Transmission Date: 20140711
  Serious: Yes (Death, Hospitalization)
  Sender: FDA-Public Use
  Company Number: BR-SA-2013SA115444

PATIENT
  Age: 78 Year
  Sex: Female
  Weight: 65 kg

DRUGS (2)
  1. LANTUS [Suspect]
     Indication: DIABETES MELLITUS
     Route: 058
     Dates: start: 2009
  2. NOVOMIX [Concomitant]
     Indication: DIABETES MELLITUS
     Dosage: DOSE:4 UNIT(S)
     Dates: end: 2013

REACTIONS (2)
  - Death [Fatal]
  - Urinary tract infection [Unknown]
